FAERS Safety Report 4368204-4 (Version None)
Quarter: 2004Q2

REPORT INFORMATION
  Report Type: 
  Country: None (occurrence: None)
  Receive Date: 20040527
  Receipt Date: 20040513
  Transmission Date: 20050107
  Serious: Yes (Hospitalization, Other)
  Sender: FDA-Public Use
  Company Number: 2004-UK-00461UK

PATIENT
  Age: 71 Year
  Sex: Female

DRUGS (6)
  1. PERSANTIN [Suspect]
     Dosage: 200 MG TWICE DAILY
     Route: 048
  2. ASPIRIN [Suspect]
     Indication: PLATELET AGGREGATION ABNORMAL
     Dosage: 75 MG ONCE DAILY
     Route: 048
     Dates: end: 20040428
  3. METFORMIN HCL [Concomitant]
  4. GLICLAZIDE (GLICLAZIDE) [Concomitant]
  5. SIMVASTATIN [Concomitant]
  6. INDAPAMIDE [Concomitant]

REACTIONS (1)
  - DUODENAL ULCER PERFORATION [None]
